FAERS Safety Report 9184231 (Version 1)
Quarter: 2012Q4

REPORT INFORMATION
  Report Type: 
  Country: US (occurrence: US)
  Receive Date: 20121031
  Receipt Date: 20121031
  Transmission Date: 20130627
  Serious: Yes (Hospitalization)
  Sender: FDA-Public Use
  Company Number: US-BAYER-2012-113754

PATIENT
  Age: 18 Year
  Sex: Female
  Weight: 74.38 kg

DRUGS (8)
  1. YAZ [Suspect]
  2. YASMIN [Suspect]
  3. MULTIVITAMINS [Concomitant]
  4. DOCUSATE [Concomitant]
  5. ZANTAC [Concomitant]
  6. VICODIN [Concomitant]
     Indication: PAIN
  7. MORPHINE [Concomitant]
     Indication: PAIN
  8. LEVAQUIN [Concomitant]
     Indication: PNEUMONIA

REACTIONS (1)
  - Pulmonary embolism [None]
